FAERS Safety Report 5117516-5 (Version None)
Quarter: 2006Q3

REPORT INFORMATION
  Report Type: 
  Country: None (occurrence: None)
  Receive Date: 20060929
  Receipt Date: 20060920
  Transmission Date: 20061208
  Serious: Yes (Death, Hospitalization, Other)
  Sender: FDA-Public Use
  Company Number: KR-BAYER-200614227GDS

PATIENT
  Age: 63 Year
  Sex: Male

DRUGS (41)
  1. SORAFENIB [Suspect]
     Indication: HEPATIC NEOPLASM MALIGNANT
     Dosage: TOTAL DAILY DOSE: 800 MG
     Route: 048
     Dates: start: 20060906, end: 20060914
  2. SORAFENIB [Suspect]
     Dosage: TOTAL DAILY DOSE: 800 MG
     Route: 048
     Dates: start: 20060201, end: 20060322
  3. SORAFENIB [Suspect]
     Dosage: TOTAL DAILY DOSE: 800 MG
     Route: 048
     Dates: start: 20060614, end: 20060726
  4. SORAFENIB [Suspect]
     Dosage: TOTAL DAILY DOSE: 800 MG
     Route: 048
     Dates: start: 20060503, end: 20060614
  5. SORAFENIB [Suspect]
     Dosage: TOTAL DAILY DOSE: 800 MG
     Route: 048
     Dates: start: 20060726, end: 20060906
  6. SORAFENIB [Suspect]
     Dosage: TOTAL DAILY DOSE: 800 MG
     Route: 048
     Dates: start: 20060322, end: 20060503
  7. COLCHIN [Concomitant]
     Indication: OSTEOARTHRITIS
     Route: 048
     Dates: start: 20060918, end: 20060922
  8. CINET [Concomitant]
     Indication: CONSTIPATION PROPHYLAXIS
     Route: 048
     Dates: start: 20060918, end: 20060922
  9. POINTI [Concomitant]
     Indication: OSTEOARTHRITIS
     Route: 048
     Dates: start: 20060918, end: 20060922
  10. CALCORT [Concomitant]
     Indication: OSTEOARTHRITIS
     Route: 048
     Dates: start: 20060918, end: 20060922
  11. PRODAY [Concomitant]
     Indication: OSTEOARTHRITIS
     Route: 048
     Dates: start: 20060918, end: 20060922
  12. KALINATE [Concomitant]
     Indication: HYPERKALAEMIA
     Route: 048
     Dates: start: 20060918, end: 20060918
  13. MUCOSTA [Concomitant]
     Indication: CONSTIPATION PROPHYLAXIS
     Route: 048
     Dates: start: 20060918, end: 20060922
  14. ULTRACET [Concomitant]
     Indication: PAIN MANAGEMENT
     Route: 048
     Dates: start: 20060918, end: 20060921
  15. HUMALOG [Concomitant]
     Indication: DIABETES MELLITUS
     Route: 042
     Dates: start: 20060917, end: 20060917
  16. MORPHINE SULFATE [Concomitant]
     Indication: PAIN MANAGEMENT
     Route: 042
     Dates: start: 20060922, end: 20060924
  17. MORPHINE SULFATE [Concomitant]
     Route: 042
     Dates: start: 20060918, end: 20060918
  18. KABIVEN [Concomitant]
     Indication: MEDICAL DIET
     Route: 042
     Dates: start: 20060914, end: 20060925
  19. KABIVEN [Concomitant]
     Route: 042
     Dates: start: 20060918, end: 20060923
  20. MACPERAN [Concomitant]
     Indication: ANTIEMETIC SUPPORTIVE CARE
     Route: 042
     Dates: start: 20060918, end: 20060922
  21. TYLENOL ER [Concomitant]
     Indication: MYALGIA
     Route: 048
     Dates: start: 20060919, end: 20060919
  22. DURAGESIC-100 [Concomitant]
     Indication: PAIN MANAGEMENT
     Route: 062
     Dates: start: 20060918, end: 20060918
  23. DURAGESIC-100 [Concomitant]
     Route: 062
     Dates: start: 20060925, end: 20060925
  24. DURAGESIC-100 [Concomitant]
     Route: 062
     Dates: start: 20060921, end: 20060922
  25. ARESTAL [Concomitant]
     Indication: DIARRHOEA
     Route: 048
     Dates: start: 20060922, end: 20060922
  26. MEGACE [Concomitant]
     Indication: ANOREXIA
     Route: 048
     Dates: start: 20060922, end: 20060925
  27. ADALAT [Concomitant]
     Indication: HYPERTENSION
     Route: 048
     Dates: start: 20060920, end: 20060920
  28. IRCODON (OXYCODONE) [Concomitant]
     Indication: PAIN MANAGEMENT
     Route: 048
     Dates: start: 20060921, end: 20060921
  29. ULCERMIN [Concomitant]
     Indication: PROPHYLAXIS AGAINST GASTROINTESTINAL ULCER
     Route: 048
     Dates: start: 20060919, end: 20060922
  30. LASIX [Concomitant]
     Indication: PULMONARY OEDEMA
     Route: 042
     Dates: start: 20060923, end: 20060923
  31. LASIX [Concomitant]
     Route: 042
     Dates: start: 20060924, end: 20060925
  32. LEUCOGEN [Concomitant]
     Indication: DRUG USE FOR UNKNOWN INDICATION
     Route: 058
     Dates: start: 20060922, end: 20060923
  33. NA-40 [Concomitant]
     Indication: DRUG USE FOR UNKNOWN INDICATION
     Route: 042
     Dates: start: 20060921, end: 20060925
  34. DENOGAN [Concomitant]
     Indication: PYREXIA
     Route: 042
     Dates: start: 20060922, end: 20060922
  35. PHENIRAMINE MALEATE [Concomitant]
     Indication: DRUG USE FOR UNKNOWN INDICATION
     Route: 042
     Dates: start: 20060923, end: 20060923
  36. VELOSULIN HM [Concomitant]
     Indication: DIABETES MELLITUS
     Route: 058
     Dates: start: 20060920, end: 20060920
  37. VELOSULIN [Concomitant]
     Indication: DIABETES MELLITUS
     Route: 058
     Dates: start: 20060921, end: 20060923
  38. VELOSULIN [Concomitant]
     Route: 058
     Dates: start: 20060925, end: 20060925
  39. VELOSULIN [Concomitant]
     Route: 058
     Dates: start: 20060924, end: 20060924
  40. ALBUMIN 20% [Concomitant]
     Indication: BLOOD ALBUMIN ABNORMAL
     Route: 042
     Dates: start: 20060919, end: 20060921
  41. ALBUMIN 20% [Concomitant]
     Route: 042
     Dates: start: 20060922, end: 20060922

REACTIONS (3)
  - FATIGUE [None]
  - HYPERKALAEMIA [None]
  - PNEUMONIA [None]
